FAERS Safety Report 11511052 (Version 3)
Quarter: 2015Q4

REPORT INFORMATION
  Report Type: Spontaneous
  Country: AU (occurrence: AU)
  Receive Date: 20150915
  Receipt Date: 20151211
  Transmission Date: 20160304
  Serious: Yes (Other)
  Sender: FDA-Public Use
  Company Number: AU-ABBVIE-15P-008-1463458-00

PATIENT
  Age: 53 Year
  Sex: Female

DRUGS (3)
  1. PHENOBARBITONE [Concomitant]
     Active Substance: PHENOBARBITAL
     Indication: PRODUCT USED FOR UNKNOWN INDICATION
  2. EPILIM EC [Suspect]
     Active Substance: VALPROATE SODIUM
     Route: 048
  3. EPILIM EC [Suspect]
     Active Substance: VALPROATE SODIUM
     Indication: EPILEPSY
     Route: 048

REACTIONS (7)
  - Epilepsy [Unknown]
  - Activities of daily living impaired [Unknown]
  - Impaired driving ability [Unknown]
  - Muscle spasms [Unknown]
  - Psychiatric symptom [Unknown]
  - Headache [Unknown]
  - Vomiting [Unknown]
